FAERS Safety Report 9027800 (Version 1)
Quarter: 2013Q1

REPORT INFORMATION
  Report Type: Spontaneous
  Country: TR (occurrence: TR)
  Receive Date: 20130124
  Receipt Date: 20130124
  Transmission Date: 20140127
  Serious: Yes (Other)
  Sender: FDA-Public Use
  Company Number: TR-JNJFOC-20121106370

PATIENT
  Sex: Female

DRUGS (4)
  1. REMICADE [Suspect]
     Indication: ANKYLOSING SPONDYLITIS
     Dosage: THIRD INFUSION
     Route: 042
     Dates: start: 20120921
  2. REMICADE [Suspect]
     Indication: ANKYLOSING SPONDYLITIS
     Dosage: SECOND INFUSION
     Route: 042
     Dates: start: 20120727
  3. REMICADE [Suspect]
     Indication: ANKYLOSING SPONDYLITIS
     Dosage: FIRST INFUSION
     Route: 042
     Dates: start: 20120615
  4. REMICADE [Suspect]
     Indication: ANKYLOSING SPONDYLITIS
     Dosage: FORTH INFUSION
     Route: 042
     Dates: start: 20121112

REACTIONS (3)
  - Cardiomyopathy [Not Recovered/Not Resolved]
  - Coronary artery disease [Not Recovered/Not Resolved]
  - Pain [Not Recovered/Not Resolved]
